FAERS Safety Report 9272580 (Version 1)
Quarter: 2013Q2

REPORT INFORMATION
  Report Type: Spontaneous
  Country: US (occurrence: US)
  Receive Date: 20130506
  Receipt Date: 20130506
  Transmission Date: 20140414
  Serious: No
  Sender: FDA-Public Use
  Company Number: US-ASTRAZENECA-2012SE96584

PATIENT
  Age: 60 Year
  Sex: Female

DRUGS (4)
  1. PRILOSEC OTC [Suspect]
     Indication: PRODUCT USED FOR UNKNOWN INDICATION
     Route: 048
     Dates: start: 2010, end: 20110401
  2. METFORMIN [Concomitant]
  3. MICARDIS [Concomitant]
  4. PRAVASTATIN [Concomitant]

REACTIONS (2)
  - Blood iron decreased [Recovered/Resolved]
  - Incorrect drug administration duration [Unknown]
